FAERS Safety Report 16323634 (Version 1)
Quarter: 2019Q2

REPORT INFORMATION
  Report Type: Spontaneous
  Country: SK (occurrence: SK)
  Receive Date: 20190517
  Receipt Date: 20190517
  Transmission Date: 20190711
  Serious: Yes (Other)
  Sender: FDA-Public Use
  Company Number: SK-ORION CORPORATION ORION PHARMA-TREX2019-1170

PATIENT
  Sex: Male

DRUGS (3)
  1. TREXAN [Suspect]
     Active Substance: METHOTREXATE SODIUM
     Dosage: TWICE A DAY, ONCE A WEEK, TAKEN ON THURSDAY
     Route: 065
     Dates: start: 2015
  2. TREXAN [Suspect]
     Active Substance: METHOTREXATE SODIUM
     Indication: PSORIASIS
     Dosage: PROBABLY IN THREE DOSES A DAY, TAKEN ON THURSDAY
     Route: 065
     Dates: start: 201402
  3. FOLIC ACID. [Concomitant]
     Active Substance: FOLIC ACID
     Dosage: BEING USED ON SATURDAY
     Route: 065

REACTIONS (1)
  - Abnormal behaviour [Unknown]

NARRATIVE: CASE EVENT DATE: 2017
